FAERS Safety Report 7816434-9 (Version None)
Quarter: 2011Q4

REPORT INFORMATION
  Report Type: 
  Country: None (occurrence: None)
  Receive Date: 20111017
  Receipt Date: 20111003
  Transmission Date: 20120403
  Serious: Yes (Death, Hospitalization)
  Sender: FDA-Public Use
  Company Number: CA-JNJFOC-20070201421

PATIENT
  Sex: Female

DRUGS (11)
  1. ZOFRAN [Concomitant]
     Dosage: AS NECESSARY
     Route: 042
     Dates: start: 20070122, end: 20070124
  2. LASIX [Concomitant]
     Route: 042
     Dates: start: 20070123, end: 20070123
  3. DOXIL [Suspect]
     Route: 042
     Dates: start: 20050922
  4. TRABECTEDIN [Suspect]
     Indication: OVARIAN CANCER
     Route: 042
  5. TYLENOL-500 [Concomitant]
     Indication: PAIN
     Dosage: EVERY 4-6 HOURS AS NECESSARY
     Route: 048
     Dates: start: 20070121, end: 20070124
  6. RED BLOOD CELLS [Concomitant]
     Indication: ANAEMIA
     Dosage: 2 UNITS
     Route: 042
     Dates: start: 20070123, end: 20070123
  7. PERCOCET [Concomitant]
     Indication: PAIN
     Dosage: 1 TABLET EVERY 4-6 HOURS AS NECESSARY
     Route: 048
     Dates: start: 20070121, end: 20070124
  8. MORPHINE [Concomitant]
     Indication: PAIN
     Dosage: 5-10MG EVERY 4 HOURS, AS NECESSARY
     Route: 042
     Dates: start: 20070121, end: 20070121
  9. METOCLOPRAMIDE HCL [Concomitant]
     Dosage: AS NECESSARY
     Route: 042
     Dates: start: 20070121, end: 20070124
  10. DOXIL [Suspect]
     Indication: OVARIAN CANCER
     Route: 042
     Dates: end: 20061019
  11. COLACE [Concomitant]
     Route: 048
     Dates: start: 20070121, end: 20070124

REACTIONS (1)
  - ACUTE MYELOID LEUKAEMIA [None]
